FAERS Safety Report 9812572 (Version 3)
Quarter: 2014Q1

REPORT INFORMATION
  Report Type: Spontaneous
  Country: US (occurrence: US)
  Receive Date: 20140113
  Receipt Date: 20140115
  Transmission Date: 20141002
  Serious: Yes (Other)
  Sender: FDA-Public Use
  Company Number: US-AMGEN-USASP2013087188

PATIENT
  Age: 59 Year
  Sex: Female
  Weight: 90.7 kg

DRUGS (12)
  1. ENBREL [Suspect]
     Indication: SPONDYLOARTHROPATHY
     Dosage: 50 MG, QWK
     Route: 058
     Dates: start: 20120120
  2. ENBREL [Suspect]
     Indication: PSORIATIC ARTHROPATHY
  3. ARAVA [Concomitant]
     Dosage: 20 MG, QD
  4. AMLODIPINE [Concomitant]
     Dosage: 5 MG, BID
  5. DICLOFENAC [Concomitant]
     Dosage: 25 MG, BID, PRN
  6. ZANTAC [Concomitant]
     Dosage: 150 MG, QD
  7. ACUPRIL [Concomitant]
     Dosage: 20 MG, BID
  8. COMBIVENT [Concomitant]
     Dosage: UNK
  9. FUROSEMIDE [Concomitant]
     Dosage: 20 MG, BID
  10. TRAMADOL [Concomitant]
     Dosage: 50 MG, BID PRN
  11. KCL [Concomitant]
     Dosage: 10 MG, TID
  12. LEVOTHYROXINE [Concomitant]
     Dosage: 50 MG, QD

REACTIONS (1)
  - Carpal tunnel syndrome [Recovered/Resolved]
